FAERS Safety Report 7045272-2 (Version None)
Quarter: 2010Q4

REPORT INFORMATION
  Report Type: 
  Country: None (occurrence: None)
  Receive Date: 20101008
  Receipt Date: 20101008
  Transmission Date: 20110411
  Serious: Yes (Other)
  Sender: FDA-Public Use
  Company Number: None

PATIENT
  Sex: Female
  Weight: 64.8644 kg

DRUGS (1)
  1. CHANTIX [Suspect]
     Dosage: 1 ML BID PO
     Route: 048
     Dates: start: 20100601, end: 20100701

REACTIONS (2)
  - DIABETES MELLITUS [None]
  - VISUAL IMPAIRMENT [None]
